FAERS Safety Report 15959782 (Version 1)
Quarter: 2019Q1

REPORT INFORMATION
  Report Type: Spontaneous
  Country: US (occurrence: US)
  Receive Date: 20190214
  Receipt Date: 20190214
  Transmission Date: 20190417
  Serious: No
  Sender: FDA-Public Use
  Company Number: US-ROCHE-2206811

PATIENT
  Sex: Male
  Weight: 81.72 kg

DRUGS (7)
  1. PROMETHAZINE HCL [Concomitant]
     Active Substance: PROMETHAZINE HYDROCHLORIDE
     Dosage: ONGOING: UNKNOWN
     Route: 048
     Dates: start: 20160919
  2. ALECENSA [Suspect]
     Active Substance: ALECTINIB HYDROCHLORIDE
     Dosage: 4 CAPSULES
     Route: 048
     Dates: start: 20160920
  3. LEVETIRACETAM. [Concomitant]
     Active Substance: LEVETIRACETAM
     Dosage: ONGOING: UNKNOWN
     Route: 048
     Dates: start: 20161007
  4. DEXAMETHASONE. [Concomitant]
     Active Substance: DEXAMETHASONE
     Dosage: ONGOING: UNKNOWN
     Route: 048
     Dates: start: 20161007
  5. LEVOTHYROXINE. [Concomitant]
     Active Substance: LEVOTHYROXINE
     Dosage: ONGOING: UNKNOWN
     Route: 048
     Dates: start: 20160919
  6. BENZONATATE. [Concomitant]
     Active Substance: BENZONATATE
     Dosage: ONGOING: UNKNOWN
     Route: 048
     Dates: start: 20160919
  7. ALECENSA [Suspect]
     Active Substance: ALECTINIB HYDROCHLORIDE
     Indication: NEOPLASM MALIGNANT
     Dosage: 4 CAPSULE
     Route: 048
     Dates: start: 20160919

REACTIONS (2)
  - Product dose omission [Unknown]
  - Cough [Unknown]
